FAERS Safety Report 12760763 (Version 1)
Quarter: 2016Q3

REPORT INFORMATION
  Report Type: Spontaneous
  Country: US (occurrence: US)
  Receive Date: 20160919
  Receipt Date: 20160919
  Transmission Date: 20161109
  Serious: No
  Sender: FDA-Public Use
  Company Number: US-GALDERMA-US16004165

PATIENT
  Sex: Female

DRUGS (1)
  1. MIRVASO [Suspect]
     Active Substance: BRIMONIDINE TARTRATE
     Indication: ROSACEA
     Dosage: 0.33%
     Route: 061
     Dates: start: 201602

REACTIONS (9)
  - Skin sensitisation [Unknown]
  - Skin infection [Unknown]
  - Emotional distress [Unknown]
  - Rebound effect [Unknown]
  - Rosacea [Unknown]
  - Skin injury [Unknown]
  - Activities of daily living impaired [Unknown]
  - Dermatitis [Unknown]
  - Dermatitis allergic [Unknown]

NARRATIVE: CASE EVENT DATE: 2016
